FAERS Safety Report 4302033-2 (Version None)
Quarter: 2004Q1

REPORT INFORMATION
  Report Type: 
  Country: None (occurrence: None)
  Receive Date: 20040223
  Receipt Date: 20040211
  Transmission Date: 20041129
  Serious: Yes (Hospitalization)
  Sender: FDA-Public Use
  Company Number: FR-ROCHE-358639

PATIENT
  Age: 60 Year
  Sex: Female

DRUGS (13)
  1. ROCEPHIN [Suspect]
     Indication: BRONCHIAL INFECTION
     Dosage: FORMULATION REPORTED AS INJECTABLE SOLUTION.
     Route: 030
  2. PROZAC [Concomitant]
     Indication: DRUG USE FOR UNKNOWN INDICATION
     Route: 065
  3. TEMESTA [Concomitant]
     Indication: DRUG USE FOR UNKNOWN INDICATION
     Route: 065
  4. SOLACY [Concomitant]
     Indication: DRUG USE FOR UNKNOWN INDICATION
     Route: 065
  5. VOLTAREN [Concomitant]
     Indication: DRUG USE FOR UNKNOWN INDICATION
     Route: 065
  6. PIVALONE [Concomitant]
     Indication: DRUG USE FOR UNKNOWN INDICATION
     Dosage: ROUTE REPORTED AS NASAL.
     Route: 050
  7. DIOVENOR [Concomitant]
     Indication: DRUG USE FOR UNKNOWN INDICATION
     Route: 065
  8. BRICANYL [Concomitant]
  9. MUCOMYST [Concomitant]
  10. ALDACTAZINE [Concomitant]
  11. RYTHMODAN [Concomitant]
  12. BRONCHODUAL [Concomitant]
  13. PULMICORT [Concomitant]

REACTIONS (3)
  - FLUSHING [None]
  - FORMICATION [None]
  - MALAISE [None]
